FAERS Safety Report 14485619 (Version 1)
Quarter: 2018Q1

REPORT INFORMATION
  Report Type: Spontaneous
  Country: US (occurrence: US)
  Receive Date: 20180203
  Receipt Date: 20180203
  Transmission Date: 20180509
  Serious: Yes (Hospitalization)
  Sender: FDA-Public Use
  Company Number: None

PATIENT
  Age: 68 Year
  Sex: Female

DRUGS (1)
  1. LEUKERAN [Suspect]
     Active Substance: CHLORAMBUCIL
     Indication: HODGKIN^S DISEASE
     Dosage: ?          OTHER FREQUENCY:QD 1-14 DAYS/CYCLE;?
     Route: 048
     Dates: start: 20171005

REACTIONS (2)
  - Urinary tract infection [None]
  - Therapy cessation [None]

NARRATIVE: CASE EVENT DATE: 20180118
